FAERS Safety Report 5676093-0 (Version None)
Quarter: 2008Q1

REPORT INFORMATION
  Report Type: 
  Country: None (occurrence: None)
  Receive Date: 20080321
  Receipt Date: 20080306
  Transmission Date: 20080703
  Serious: Yes (Other)
  Sender: FDA-Public Use
  Company Number: GB-TEVA-168483ISR

PATIENT
  Sex: Female

DRUGS (5)
  1. AMOXI-CLAVULANICO [Suspect]
  2. FUROSEMIDE [Suspect]
  3. NIFEDIPINE [Suspect]
  4. ENOXAPARIN SODIUM [Suspect]
  5. STEROID NOS [Suspect]

REACTIONS (17)
  - ASTHMA [None]
  - BLOOD PRESSURE DECREASED [None]
  - CARDIAC MURMUR [None]
  - CARDIOMEGALY [None]
  - DRUG EXPOSURE DURING PREGNANCY [None]
  - DYSPNOEA [None]
  - GENERALISED OEDEMA [None]
  - HEADACHE [None]
  - JUGULAR VEIN DISTENSION [None]
  - LEFT VENTRICULAR HYPERTROPHY [None]
  - MITRAL VALVE INCOMPETENCE [None]
  - OEDEMA PERIPHERAL [None]
  - ORTHOPNOEA [None]
  - PERIPARTUM CARDIOMYOPATHY [None]
  - PULMONARY OEDEMA [None]
  - RALES [None]
  - SINUS TACHYCARDIA [None]
